FAERS Safety Report 24165962 (Version 1)
Quarter: 2024Q3

REPORT INFORMATION
  Report Type: Report from Study
  Country: GT (occurrence: None)
  Receive Date: 20240802
  Receipt Date: 20240802
  Transmission Date: 20241017
  Serious: Yes (Other)
  Sender: ASTRAZENECA
  Company Number: 2022A095102

PATIENT
  Age: 23097 Day
  Sex: Male

DRUGS (2)
  1. XIGDUO XR [Suspect]
     Active Substance: DAPAGLIFLOZIN PROPANEDIOL\METFORMIN HYDROCHLORIDE
     Dosage: XIGDUO XR 10MG/1000 1 DAILY DOSE
     Route: 048
     Dates: start: 20200101
  2. XIGDUO XR [Suspect]
     Active Substance: DAPAGLIFLOZIN PROPANEDIOL\METFORMIN HYDROCHLORIDE
     Dosage: XIGDUO XR 10MG/1000 2 DAILY DOSES
     Route: 048

REACTIONS (2)
  - Coronary artery disease [Unknown]
  - Off label use [Unknown]

NARRATIVE: CASE EVENT DATE: 20200101
